FAERS Safety Report 10331506 (Version 1)
Quarter: 2014Q3

REPORT INFORMATION
  Report Type: Spontaneous
  Country: JP (occurrence: None)
  Receive Date: 20140718
  Receipt Date: 20140718
  Transmission Date: 20150326
  Serious: Yes (Other)
  Sender: FDA-Public Use
  Company Number: 2014JP00827

PATIENT
  Age: 22 Year
  Sex: Male

DRUGS (2)
  1. LAMOTRIGINE (LAMOTRIGINE) TABLET [Suspect]
     Active Substance: LAMOTRIGINE
     Indication: OBSESSIVE-COMPULSIVE DISORDER
  2. CLOMIPRAMINE (CLOMIPRAMINE) [Suspect]
     Active Substance: CLOMIPRAMINE
     Indication: OBSESSIVE-COMPULSIVE DISORDER

REACTIONS (9)
  - Decreased interest [None]
  - Anhedonia [None]
  - Aggression [None]
  - Asthenia [None]
  - Insomnia [None]
  - Hypomania [None]
  - Anger [None]
  - Suicidal ideation [None]
  - Depressed mood [None]
